FAERS Safety Report 10185591 (Version 3)
Quarter: 2014Q2

REPORT INFORMATION
  Report Type: Report from Study
  Country: BR (occurrence: BR)
  Receive Date: 20140521
  Receipt Date: 20140616
  Transmission Date: 20141212
  Serious: Yes (Disabling, Other)
  Sender: FDA-Public Use
  Company Number: BR-ROCHE-1381874

PATIENT
  Age: 36 Year
  Sex: Male

DRUGS (6)
  1. AVASTIN [Suspect]
     Indication: COLORECTAL CANCER
     Route: 065
     Dates: start: 201402
  2. AVASTIN [Suspect]
     Dosage: FOURTH INFUSION
     Route: 065
     Dates: start: 20140402
  3. AVASTIN [Suspect]
     Dosage: LATEST INFUSION RECEIVED
     Route: 065
     Dates: start: 20140428
  4. MORPHINE [Concomitant]
     Indication: PAIN
     Route: 065
  5. MORPHINE [Concomitant]
     Indication: PAIN
  6. DIPYRONE [Concomitant]
     Indication: PAIN

REACTIONS (6)
  - Oropharyngeal pain [Not Recovered/Not Resolved]
  - Stomatitis [Not Recovered/Not Resolved]
  - Asthenia [Not Recovered/Not Resolved]
  - Weight decreased [Not Recovered/Not Resolved]
  - Anaemia [Unknown]
  - Malaise [Recovered/Resolved]
